FAERS Safety Report 7085660-1 (Version None)
Quarter: 2010Q4

REPORT INFORMATION
  Report Type: 
  Country: None (occurrence: None)
  Receive Date: 20101027
  Receipt Date: 20101012
  Transmission Date: 20110411
  Serious: Yes (Hospitalization)
  Sender: FDA-Public Use
  Company Number: 020302

PATIENT
  Sex: Female

DRUGS (3)
  1. CIMZIA [Suspect]
     Dosage: SUBCUTANEOUS
     Route: 058
     Dates: start: 20091001
  2. PREDNISONE [Suspect]
     Dosage: (60 MG) (TAPERED TO 20 MG)
     Dates: start: 20100901
  3. PREDNISONE [Suspect]
     Dosage: (60 MG) (TAPERED TO 20 MG)
     Dates: start: 20101012

REACTIONS (3)
  - DEHYDRATION [None]
  - HOT FLUSH [None]
  - INTESTINAL OBSTRUCTION [None]
